FAERS Safety Report 10204847 (Version 2)
Quarter: 2014Q2

REPORT INFORMATION
  Report Type: Spontaneous
  Country: VE (occurrence: VE)
  Receive Date: 20140529
  Receipt Date: 20140529
  Transmission Date: 20141212
  Serious: Yes (Other)
  Sender: FDA-Public Use
  Company Number: VE-PFIZER INC-2014140356

PATIENT
  Age: 89 Year
  Sex: Male

DRUGS (4)
  1. LYRICA [Suspect]
     Indication: PAIN
     Dosage: 75 MG, ALTERNATE DAY
     Route: 048
     Dates: start: 2013
  2. NOTOLAC [Concomitant]
     Indication: PAIN
     Dosage: 30 MG, 1X/DAY
     Route: 060
  3. VALSARTAN/HYDROCHLOROTHIAZIDE EG [Concomitant]
     Indication: HYPERTENSION
     Dosage: 1 DF, 1X/DAY
     Route: 048
  4. OMEPRAZOL [Concomitant]
     Indication: PROPHYLAXIS
     Dosage: 20 MG, 1X/DAY
     Route: 048

REACTIONS (2)
  - Blood cholesterol increased [Recovered/Resolved]
  - Dizziness [Recovered/Resolved]
